FAERS Safety Report 16117965 (Version 4)
Quarter: 2019Q3

REPORT INFORMATION
  Report Type: Spontaneous
  Country: JP (occurrence: JP)
  Receive Date: 20190326
  Receipt Date: 20190709
  Transmission Date: 20191004
  Serious: Yes (Other)
  Sender: FDA-Public Use
  Company Number: JP-ASTRAZENECA-2019SE46253

PATIENT
  Age: 24334 Day
  Sex: Female
  Weight: 41 kg

DRUGS (3)
  1. TAGRISSO [Suspect]
     Active Substance: OSIMERTINIB
     Indication: NON-SMALL CELL LUNG CANCER
     Route: 048
     Dates: start: 20190218, end: 20190312
  2. IRESSA [Suspect]
     Active Substance: GEFITINIB
     Indication: NON-SMALL CELL LUNG CANCER
     Route: 048
     Dates: start: 20180713, end: 20180830
  3. CARBOPLATIN. [Concomitant]
     Active Substance: CARBOPLATIN
     Route: 048
     Dates: start: 20181020

REACTIONS (5)
  - Malignant neoplasm progression [Recovered/Resolved]
  - Vocal cord paralysis [Unknown]
  - Pneumonia [Unknown]
  - Liver disorder [Recovered/Resolved]
  - Pulmonary toxicity [Recovered/Resolved]

NARRATIVE: CASE EVENT DATE: 20180830
